FAERS Safety Report 14913211 (Version 3)
Quarter: 2018Q2

REPORT INFORMATION
  Report Type: Spontaneous
  Country: FI (occurrence: FI)
  Receive Date: 20180518
  Receipt Date: 20180630
  Transmission Date: 20180711
  Serious: Yes (Hospitalization, Disabling, Other)
  Sender: FDA-Public Use
  Company Number: FI-AUROBINDO-AUR-APL-2018-023413

PATIENT
  Sex: Male

DRUGS (25)
  1. OLANZAPINE ORION [Suspect]
     Active Substance: OLANZAPINE
     Indication: PSYCHOTIC SYMPTOM
     Dosage: 15 MILLIGRAM
     Route: 065
     Dates: start: 20180126
  2. OLANZAPINE ORION [Suspect]
     Active Substance: OLANZAPINE
     Dosage: 2 MILLIGRAM, 3 TIMES A DAY
     Route: 065
     Dates: start: 20180201
  3. RISPERIDON ORION [Suspect]
     Active Substance: RISPERIDONE
     Dosage: 2 MILLIGRAM, ONCE A DAY (QD) (0+0+2)
     Route: 065
     Dates: start: 20180124
  4. ATIVAN [Suspect]
     Active Substance: LORAZEPAM
     Dosage: 4 MILLIGRAM, UNK
     Route: 065
     Dates: start: 20180126
  5. ATIVAN [Suspect]
     Active Substance: LORAZEPAM
     Dosage: 2 MILLIGRAM, ONCE A DAY, (RESTLESS, DELUSIONAL)
     Route: 065
     Dates: start: 20180129
  6. OLANZAPINE ORION [Suspect]
     Active Substance: OLANZAPINE
     Dosage: 7.5 MILLIGRAM
     Route: 065
     Dates: start: 20180131, end: 20180203
  7. OLANZAPINE ORION [Suspect]
     Active Substance: OLANZAPINE
     Dosage: UNK
     Route: 065
     Dates: start: 20180203
  8. RISPERIDON ORION [Suspect]
     Active Substance: RISPERIDONE
     Indication: PSYCHOTIC SYMPTOM
     Dosage: 1 MILLIGRAM, ONCE A DAY (IN THE EVENINGS)
     Route: 065
     Dates: start: 20171231
  9. RISPERIDON ORION [Suspect]
     Active Substance: RISPERIDONE
     Dosage: 3 MILLIGRAM, TWO TIMES A DAY (BID) (1+0+2 MG)
     Route: 065
     Dates: start: 20180107
  10. LORAZEPAM. [Suspect]
     Active Substance: LORAZEPAM
     Indication: PRODUCT USED FOR UNKNOWN INDICATION
     Dosage: 2 MILLIGRAM (.5MG+.5MG+1MG)
     Route: 065
     Dates: start: 20180104
  11. RISPERIDON ORION [Suspect]
     Active Substance: RISPERIDONE
     Dosage: 3 MILLIGRAM, ONCE A DAY
     Route: 065
     Dates: start: 20180115
  12. LORAZEPAM. [Suspect]
     Active Substance: LORAZEPAM
     Dosage: 3 MILLIGRAM (1MG+1MG+1MG)
     Route: 065
     Dates: start: 20180107
  13. DIAPAM                             /00017001/ [Suspect]
     Active Substance: DIAZEPAM
     Indication: PRODUCT USED FOR UNKNOWN INDICATION
     Dosage: 10 MILLIGRAM, 3 TIMES A DAY
     Route: 065
     Dates: start: 20180129, end: 20180201
  14. RISPERIDON ORION [Suspect]
     Active Substance: RISPERIDONE
     Dosage: 1 MILLIGRAM, ONCE A DAY
     Route: 065
     Dates: start: 20180127, end: 20180129
  15. SERENASE                           /00027401/ [Suspect]
     Active Substance: HALOPERIDOL
     Dosage: 5 MILLIGRAM (2.5 MG, 2 IN 1D)
     Route: 065
     Dates: start: 20180129
  16. ATIVAN [Suspect]
     Active Substance: LORAZEPAM
     Dosage: 3 MILLIGRAM, ONCE A DAY
     Route: 065
     Dates: start: 20180107
  17. DIAPAM                             /00017001/ [Suspect]
     Active Substance: DIAZEPAM
     Dosage: 15 MILLIGRAM, ONCE A DAY (QD)
     Route: 065
  18. DIAPAM                             /00017001/ [Suspect]
     Active Substance: DIAZEPAM
     Dosage: 20 MILLIGRAM (5MG+5MG+L0MG)
     Route: 065
  19. RISPERIDON ORION [Suspect]
     Active Substance: RISPERIDONE
     Indication: HALLUCINATION, VISUAL
     Dosage: 2 MG, UNK
     Route: 065
     Dates: start: 20180102
  20. ATIVAN [Suspect]
     Active Substance: LORAZEPAM
     Indication: PRODUCT USED FOR UNKNOWN INDICATION
     Dosage: 2 MILLIGRAM, 3 TIMES A DAY (TID) (0,5+0,5+1)
     Route: 065
     Dates: start: 20180104
  21. LORAZEPAM. [Suspect]
     Active Substance: LORAZEPAM
     Dosage: 2 MILLIGRAM (0.5+0.5+1MG)
     Route: 065
     Dates: start: 20180201
  22. ZYPREXA [Suspect]
     Active Substance: OLANZAPINE
     Indication: PRODUCT USED FOR UNKNOWN INDICATION
     Dosage: 15 MILLIGRAM
     Route: 065
     Dates: start: 20180126
  23. OLANZAPINE ORION [Suspect]
     Active Substance: OLANZAPINE
     Indication: HALLUCINATION, VISUAL
     Dosage: 10 MILLIGRAM, ONCE A DAY (QD)
     Route: 065
     Dates: start: 20180124
  24. RISPERIDON ORION [Suspect]
     Active Substance: RISPERIDONE
     Dosage: 4 MILLIGRAM, TWO TIMES A DAY (BID) (1+0+3 MG)
     Route: 065
     Dates: start: 20180114
  25. SERENASE                           /00027401/ [Suspect]
     Active Substance: HALOPERIDOL
     Indication: PRODUCT USED FOR UNKNOWN INDICATION
     Dosage: 5 MILLIGRAM
     Route: 065
     Dates: start: 20180126

REACTIONS (7)
  - Dementia with Lewy bodies [Recovering/Resolving]
  - Vascular dementia [Recovering/Resolving]
  - Parkinson^s disease [Recovering/Resolving]
  - Hallucination [Recovering/Resolving]
  - Drug ineffective [Recovering/Resolving]
  - Balance disorder [Recovering/Resolving]
  - Parkinsonism [Recovering/Resolving]
